FAERS Safety Report 7498673-2 (Version None)
Quarter: 2011Q2

REPORT INFORMATION
  Report Type: 
  Country: None (occurrence: None)
  Receive Date: 20110524
  Receipt Date: 20110519
  Transmission Date: 20111010
  Serious: Yes (Hospitalization, Other)
  Sender: FDA-Public Use
  Company Number: GB-US-EMD SERONO, INC.-7048221

PATIENT
  Sex: Female
  Weight: 51 kg

DRUGS (5)
  1. REBIF [Suspect]
     Route: 058
     Dates: start: 20100801, end: 20110201
  2. REBIF [Suspect]
     Route: 058
     Dates: start: 20070901
  3. REBIF [Suspect]
     Route: 058
     Dates: start: 20070701, end: 20070901
  4. REBIF [Suspect]
     Indication: PRODUCT USED FOR UNKNOWN INDICATION
     Route: 058
     Dates: start: 20041201, end: 20070701
  5. REBIF [Suspect]
     Route: 058
     Dates: start: 20110201, end: 20110226

REACTIONS (9)
  - URINARY TRACT INFECTION [None]
  - CELLULITIS STAPHYLOCOCCAL [None]
  - STAPHYLOCOCCAL INFECTION [None]
  - INJECTION SITE INFECTION [None]
  - LIVER FUNCTION TEST ABNORMAL [None]
  - DEVICE RELATED INFECTION [None]
  - JAUNDICE [None]
  - PETIT MAL EPILEPSY [None]
  - RASH MACULO-PAPULAR [None]
